FAERS Safety Report 17958516 (Version 1)
Quarter: 2020Q2

REPORT INFORMATION
  Report Type: Spontaneous
  Country: CN (occurrence: CN)
  Receive Date: 20200629
  Receipt Date: 20200629
  Transmission Date: 20200714
  Serious: Yes (Other)
  Sender: FDA-Public Use
  Company Number: NVSC2020CN178602

PATIENT
  Age: 6 Year
  Sex: Female

DRUGS (14)
  1. VINDESINE [Suspect]
     Active Substance: VINDESINE
     Indication: DIFFUSE LARGE B-CELL LYMPHOMA STAGE III
     Dosage: V-AA-RBB-RCC REGIME
     Route: 065
  2. CYCLOPHOSPHAMIDE. [Suspect]
     Active Substance: CYCLOPHOSPHAMIDE
     Indication: DIFFUSE LARGE B-CELL LYMPHOMA STAGE III
     Dosage: V-AA-RBB-RCC REGIME
     Route: 065
  3. ARA-C [Suspect]
     Active Substance: CYTARABINE
     Indication: DIFFUSE LARGE B-CELL LYMPHOMA STAGE III
     Dosage: V-AA-RBB-RCC REGIME
     Route: 065
  4. CARPROFEN [Suspect]
     Active Substance: CARPROFEN
     Indication: INFECTION
     Dosage: UNK
     Route: 042
  5. METHOTREXATE. [Suspect]
     Active Substance: METHOTREXATE
     Indication: DIFFUSE LARGE B-CELL LYMPHOMA STAGE III
     Dosage: V-AA-RBB-RCC REGIME
     Route: 065
  6. VINCRISTINE [Suspect]
     Active Substance: VINCRISTINE
     Indication: DIFFUSE LARGE B-CELL LYMPHOMA STAGE III
     Dosage: V-AA-RBB-RCC REGIME
     Route: 065
  7. PREDNISONE. [Suspect]
     Active Substance: PREDNISONE
     Indication: DIFFUSE LARGE B-CELL LYMPHOMA STAGE III
     Dosage: V-AA-RBB-RCC REGIME
     Route: 065
  8. ETOPOSIDE. [Suspect]
     Active Substance: ETOPOSIDE
     Indication: DIFFUSE LARGE B-CELL LYMPHOMA STAGE III
     Dosage: V-AA-RBB-RCC REGIME
     Route: 065
  9. DEXAMETHASONE. [Suspect]
     Active Substance: DEXAMETHASONE
     Indication: DIFFUSE LARGE B-CELL LYMPHOMA STAGE III
     Dosage: V-AA-RBB-RCC REGIME
     Route: 065
  10. VANCOMYCIN [Suspect]
     Active Substance: VANCOMYCIN
     Indication: INFECTION
     Dosage: UNK
     Route: 042
  11. IFOSFAMIDE. [Suspect]
     Active Substance: IFOSFAMIDE
     Indication: DIFFUSE LARGE B-CELL LYMPHOMA STAGE III
     Dosage: V-AA-RBB-RCC REGIME
     Route: 065
  12. IMIPENEM [Suspect]
     Active Substance: IMIPENEM
     Indication: INFECTION
     Dosage: UNK
     Route: 042
  13. RITUXIMAB. [Suspect]
     Active Substance: RITUXIMAB
     Indication: DIFFUSE LARGE B-CELL LYMPHOMA STAGE III
     Dosage: V-AA-RBB-RCC REGIME
     Route: 065
  14. ADRIAMYCIN [Suspect]
     Active Substance: DOXORUBICIN HYDROCHLORIDE
     Indication: DIFFUSE LARGE B-CELL LYMPHOMA STAGE III
     Dosage: V-AA-RBB-RCC REGIME
     Route: 065

REACTIONS (3)
  - Hydrothorax [Unknown]
  - Clostridium difficile infection [Unknown]
  - Ascites [Unknown]
